FAERS Safety Report 19012516 (Version 7)
Quarter: 2021Q3

REPORT INFORMATION
  Report Type: Report from Study
  Country: US (occurrence: US)
  Receive Date: 20210315
  Receipt Date: 20210803
  Transmission Date: 20211014
  Serious: Yes (Other)
  Sender: FDA-Public Use
  Company Number: US-PFIZER INC-2021254945

PATIENT
  Age: 82 Year
  Sex: Female

DRUGS (1)
  1. IBRANCE [Suspect]
     Active Substance: PALBOCICLIB
     Indication: BREAST CANCER FEMALE
     Dosage: 125 MG, CYCLIC (ONCE A DAY 21 DAYS ON AND 7 DAYS OFF)
     Route: 048
     Dates: start: 20210219

REACTIONS (12)
  - Nephrolithiasis [Unknown]
  - Epistaxis [Recovering/Resolving]
  - Blood count abnormal [Unknown]
  - Insomnia [Not Recovered/Not Resolved]
  - Dry mouth [Not Recovered/Not Resolved]
  - Asthenia [Unknown]
  - Haematochezia [Recovered/Resolved]
  - Fatigue [Not Recovered/Not Resolved]
  - Nausea [Unknown]
  - Intentional dose omission [Unknown]
  - Tooth infection [Unknown]
  - Alopecia [Unknown]

NARRATIVE: CASE EVENT DATE: 2021
